FAERS Safety Report 8556894-1 (Version None)
Quarter: 2012Q3

REPORT INFORMATION
  Report Type: 
  Country: None (occurrence: None)
  Receive Date: 20120801
  Receipt Date: 20120724
  Transmission Date: 20120928
  Serious: Yes (Death, Life-Threatening, Other)
  Sender: FDA-Public Use
  Company Number: PK-ROXANE LABORATORIES, INC.-2012-RO-01588RO

PATIENT
  Age: 20 Year
  Sex: Male

DRUGS (3)
  1. CYCLOSPORINE [Suspect]
     Indication: RENAL TRANSPLANT
  2. AZATHIOPRINE [Suspect]
     Indication: RENAL TRANSPLANT
  3. DELTACORTIL [Suspect]
     Indication: RENAL TRANSPLANT

REACTIONS (10)
  - HEPATITIS C [None]
  - GRAFT DYSFUNCTION [None]
  - COAGULOPATHY [None]
  - DEATH [None]
  - MULTI-ORGAN FAILURE [None]
  - CHOLESTASIS [None]
  - PYELONEPHRITIS [None]
  - THROMBOCYTOPENIA [None]
  - SEPSIS [None]
  - GLOMERULONEPHRITIS [None]
